FAERS Safety Report 7816569-0 (Version None)
Quarter: 2011Q4

REPORT INFORMATION
  Report Type: 
  Country: None (occurrence: None)
  Receive Date: 20111017
  Receipt Date: 20111011
  Transmission Date: 20120403
  Serious: Yes (Disabling, Other)
  Sender: FDA-Public Use
  Company Number: US-PFIZER INC-HQWYE466522MAR06

PATIENT
  Sex: Female
  Weight: 63 kg

DRUGS (5)
  1. PREMPRO [Suspect]
     Indication: HORMONE REPLACEMENT THERAPY
     Dosage: 0.625MG/2.5MG, UNK
     Route: 048
     Dates: start: 19980301, end: 20020401
  2. WELLBUTRIN [Concomitant]
     Indication: DEPRESSION
     Dosage: AS NEEDED, UNK
     Dates: start: 19990101
  3. WELLBUTRIN [Concomitant]
     Indication: SMOKING CESSATION THERAPY
  4. ALPRAZOLAM [Concomitant]
     Indication: ANXIETY
     Dosage: AS NEEDED, UNK
     Dates: start: 19990101
  5. CIPROFLOXACIN [Concomitant]
     Indication: INFECTION
     Dosage: UNK
     Dates: start: 20000901, end: 20101001

REACTIONS (1)
  - BREAST CANCER RECURRENT [None]
